FAERS Safety Report 17292451 (Version 1)
Quarter: 2020Q1

REPORT INFORMATION
  Report Type: Spontaneous
  Country: US (occurrence: US)
  Receive Date: 20191231
  Receipt Date: 20191231
  Transmission Date: 20200409
  Serious: Yes (Death)
  Sender: FDA-Public Use
  Company Number: None

PATIENT
  Age: 36 Year
  Sex: Female
  Weight: 80 kg

DRUGS (3)
  1. NIVOLUMAB [Suspect]
     Active Substance: NIVOLUMAB
     Indication: GLIOBLASTOMA
     Route: 042
     Dates: start: 20190404, end: 20190920
  2. BEVACIZUMAB. [Suspect]
     Active Substance: BEVACIZUMAB
     Indication: GLIOBLASTOMA
     Route: 042
     Dates: start: 20190404, end: 20190920
  3. ZONEGRAN [Concomitant]
     Active Substance: ZONISAMIDE

REACTIONS (2)
  - Disease progression [None]
  - Hepatic failure [None]

NARRATIVE: CASE EVENT DATE: 20191227
